FAERS Safety Report 21049234 (Version 1)
Quarter: 2022Q3

REPORT INFORMATION
  Report Type: Spontaneous
  Country: US (occurrence: None)
  Receive Date: 20220706
  Receipt Date: 20220706
  Transmission Date: 20221027
  Serious: Yes (Death)
  Sender: FDA-Public Use
  Company Number: None

PATIENT
  Age: 71 Year
  Sex: Male
  Weight: 53.55 kg

DRUGS (1)
  1. EVUSHELD [Suspect]
     Active Substance: CILGAVIMAB\TIXAGEVIMAB
     Indication: COVID-19 prophylaxis
     Dates: start: 20220525

REACTIONS (4)
  - Cardiomyopathy [None]
  - Arrhythmia [None]
  - Cardiac failure [None]
  - Myocardial infarction [None]

NARRATIVE: CASE EVENT DATE: 20220616
